FAERS Safety Report 13488519 (Version 1)
Quarter: 2017Q2

REPORT INFORMATION
  Report Type: Spontaneous
  Country: US (occurrence: US)
  Receive Date: 20170426
  Receipt Date: 20170426
  Transmission Date: 20170830
  Serious: No
  Sender: FDA-Public Use
  Company Number: US-ALKERMES INC.-ALK-2017-000014

PATIENT
  Age: 34 Year
  Sex: Male
  Weight: 88.44 kg

DRUGS (1)
  1. VIVITROL [Suspect]
     Active Substance: NALTREXONE
     Indication: DRUG USE DISORDER
     Dosage: 380 MG, QMO
     Route: 030
     Dates: start: 201610

REACTIONS (13)
  - Sinus disorder [Unknown]
  - Ocular hyperaemia [Unknown]
  - Depression [Unknown]
  - Mood altered [Not Recovered/Not Resolved]
  - Mydriasis [Unknown]
  - Headache [Not Recovered/Not Resolved]
  - Fatigue [Unknown]
  - Feeling abnormal [Unknown]
  - Viral upper respiratory tract infection [Unknown]
  - Drug use disorder [Unknown]
  - Crying [Unknown]
  - Imprisonment [Unknown]
  - Irritability [Not Recovered/Not Resolved]

NARRATIVE: CASE EVENT DATE: 201612
